FAERS Safety Report 5704305-3 (Version None)
Quarter: 2008Q2

REPORT INFORMATION
  Report Type: 
  Country: None (occurrence: None)
  Receive Date: 20080414
  Receipt Date: 20080404
  Transmission Date: 20081010
  Serious: Yes (Life-Threatening, Hospitalization)
  Sender: FDA-Public Use
  Company Number: MX-JNJFOC-20080402040

PATIENT
  Age: 48 Year
  Sex: Male
  Weight: 104 kg

DRUGS (1)
  1. REMICADE [Suspect]
     Indication: PSORIATIC ARTHROPATHY

REACTIONS (4)
  - GASTRIC HAEMORRHAGE [None]
  - MENINGITIS PNEUMOCOCCAL [None]
  - PEPTIC ULCER [None]
  - SINUSITIS BACTERIAL [None]
